FAERS Safety Report 7268527-5 (Version None)
Quarter: 2010Q4

REPORT INFORMATION
  Report Type: 
  Country: None (occurrence: None)
  Receive Date: 20101206
  Receipt Date: 20101018
  Transmission Date: 20110411
  Serious: No
  Sender: FDA-Public Use
  Company Number: 2010SP055647

PATIENT
  Age: 51 Year
  Sex: Female

DRUGS (4)
  1. SAPHRIS [Suspect]
     Indication: BIPOLAR I DISORDER
     Dosage: 5 MG, BID,
     Dates: start: 20101017
  2. SAPHRIS [Suspect]
     Indication: DELUSION
     Dosage: 5 MG, BID,
     Dates: start: 20101017
  3. EFFEXOR [Concomitant]
  4. WELLBUTRIN [Concomitant]

REACTIONS (3)
  - DYSPHAGIA [None]
  - HYPOAESTHESIA ORAL [None]
  - PHARYNGEAL HYPOAESTHESIA [None]
